FAERS Safety Report 17890441 (Version 1)
Quarter: 2020Q2

REPORT INFORMATION
  Report Type: Spontaneous
  Country: BR (occurrence: BR)
  Receive Date: 20200612
  Receipt Date: 20200612
  Transmission Date: 20200714
  Serious: Yes (Other)
  Sender: FDA-Public Use
  Company Number: BR-PFIZER INC-2020227097

PATIENT
  Age: 3 Year
  Sex: Male
  Weight: 13.8 kg

DRUGS (6)
  1. SOMATROPIN. [Suspect]
     Active Substance: SOMATROPIN
     Indication: PRADER-WILLI SYNDROME
     Dosage: 0.08 MG/M2, DAILY
  2. SOMATROPIN. [Suspect]
     Active Substance: SOMATROPIN
     Dosage: 0.8 MG/M2, DAILY
  3. SOMATROPIN. [Suspect]
     Active Substance: SOMATROPIN
     Dosage: 0.95 MG/M2, DAILY
  4. SOMATROPIN. [Suspect]
     Active Substance: SOMATROPIN
     Dosage: 0.97 MG/M2, DAILY
  5. SOMATROPIN. [Suspect]
     Active Substance: SOMATROPIN
     Dosage: 0.97 MG/M2, DAILY
  6. SOMATROPIN. [Suspect]
     Active Substance: SOMATROPIN
     Dosage: 0.77 MG/M2, DAILY

REACTIONS (6)
  - Snoring [Unknown]
  - Headache [Recovered/Resolved]
  - Off label use [Unknown]
  - Condition aggravated [Unknown]
  - Apnoea [Unknown]
  - Abnormal behaviour [Unknown]
